FAERS Safety Report 15779772 (Version 6)
Quarter: 2019Q2

REPORT INFORMATION
  Report Type: Report from Study
  Country: DE (occurrence: DE)
  Receive Date: 20190102
  Receipt Date: 20190401
  Transmission Date: 20190711
  Serious: Yes (Life-Threatening, Hospitalization, Other)
  Sender: FDA-Public Use
  Company Number: DE-BRISTOL-MYERS SQUIBB COMPANY-BMS-2018-121478

PATIENT
  Age: 64 Year
  Sex: Male

DRUGS (12)
  1. ONDASETRON                         /00955301/ [Concomitant]
     Active Substance: ONDANSETRON
     Indication: ADVERSE DRUG REACTION
     Dosage: 8 MILLIGRAM, PRN
     Route: 065
  2. NIVOLUMAB [Suspect]
     Active Substance: NIVOLUMAB
     Indication: NON-SMALL CELL LUNG CANCER
     Dosage: 3 MG/KG, Q2WK
     Route: 042
     Dates: start: 20181204, end: 20181218
  3. INSULIN GLARGINE [Concomitant]
     Active Substance: INSULIN GLARGINE
     Indication: METABOLIC DISORDER
     Dosage: 1 DF, UNK
     Route: 065
  4. INSULIN LISPRO [Concomitant]
     Active Substance: INSULIN LISPRO
     Indication: METABOLIC DISORDER
     Dosage: 1 DF, UNK
     Route: 065
  5. METOCLOPRAMID                      /00041901/ [Concomitant]
     Active Substance: METOCLOPRAMIDE
     Indication: ADVERSE DRUG REACTION
     Dosage: 10 MILLIGRAM, PRN
     Route: 065
  6. PANTOPRAZOL                        /01263201/ [Concomitant]
     Active Substance: PANTOPRAZOLE
     Indication: ADVERSE DRUG REACTION
     Dosage: 40 MILLIGRAM
     Route: 065
  7. ZOLPIDEM [Concomitant]
     Active Substance: ZOLPIDEM\ZOLPIDEM TARTRATE
     Indication: MALIGNANT NEOPLASM PROGRESSION
     Dosage: 10 MG, PRN
     Route: 065
     Dates: end: 20181220
  8. SALBUTAMOL [Concomitant]
     Active Substance: ALBUTEROL
     Indication: LUNG DISORDER
     Dosage: 0.1 MG, PRN
     Route: 065
  9. LOPERAMID [Concomitant]
     Active Substance: LOPERAMIDE
     Indication: ADVERSE DRUG REACTION
     Dosage: 2 MG, PRN
     Route: 065
     Dates: end: 20181220
  10. SITAGLIPTIN [Concomitant]
     Active Substance: SITAGLIPTIN
     Indication: METABOLIC DISORDER
     Dosage: 100 MG, UNK
     Route: 065
  11. GLYCOPYRRONIUMBROMID ACCORD [Concomitant]
     Indication: LUNG DISORDER
     Dosage: 50 ?G, UNK
     Route: 065
  12. TAMSULOSIN [Concomitant]
     Active Substance: TAMSULOSIN
     Indication: PRODUCT USED FOR UNKNOWN INDICATION
     Dosage: 0.4 MILLIGRAM
     Route: 065

REACTIONS (9)
  - Myocardial infarction [Recovered/Resolved]
  - Dry skin [Unknown]
  - Epistaxis [Recovered/Resolved]
  - Headache [Not Recovered/Not Resolved]
  - Fatigue [Recovered/Resolved]
  - Constipation [Recovered/Resolved]
  - Myalgia [Recovered/Resolved]
  - Pulmonary oedema [Recovered/Resolved]
  - Blood thyroid stimulating hormone increased [Not Recovered/Not Resolved]

NARRATIVE: CASE EVENT DATE: 20181218
